FAERS Safety Report 10630683 (Version 1)
Quarter: 2014Q4

REPORT INFORMATION
  Report Type: Spontaneous
  Country: US (occurrence: US)
  Receive Date: 20141205
  Receipt Date: 20141205
  Transmission Date: 20150529
  Serious: Yes (Death)
  Sender: FDA-Public Use
  Company Number: US-BRISTOL-MYERS SQUIBB COMPANY-21332267

PATIENT
  Age: 52 Year
  Sex: Female

DRUGS (2)
  1. TASIGNA [Concomitant]
     Active Substance: NILOTINIB
  2. SPRYCEL [Suspect]
     Active Substance: DASATINIB
     Dates: start: 20140528

REACTIONS (1)
  - Death [Fatal]
